FAERS Safety Report 9936717 (Version 2)
Quarter: 2014Q1

REPORT INFORMATION
  Report Type: Spontaneous
  Country: US (occurrence: US)
  Receive Date: 20140228
  Receipt Date: 20140228
  Transmission Date: 20141002
  Serious: Yes (Hospitalization, Other)
  Sender: FDA-Public Use
  Company Number: US-ASTRAZENECA-2009UW09298

PATIENT
  Age: 66 Year
  Sex: Female
  Weight: 113.4 kg

DRUGS (9)
  1. ARIMIDEX [Suspect]
     Dosage: DAILY
     Route: 048
     Dates: start: 200901
  2. METOPROLOL TARTRATE [Suspect]
     Indication: ATRIAL FIBRILLATION
  3. CRESTOR [Suspect]
     Indication: BLOOD CHOLESTEROL ABNORMAL
     Route: 048
     Dates: start: 2007
  4. CRESTOR [Suspect]
     Indication: BLOOD CHOLESTEROL ABNORMAL
     Route: 048
  5. TAMOXIFEN [Suspect]
     Indication: BREAST CANCER
     Route: 048
  6. PRADAXA [Concomitant]
     Indication: ATRIAL FIBRILLATION
     Route: 048
  7. DIOVAN [Concomitant]
     Indication: BLOOD PRESSURE ABNORMAL
     Dosage: 160/25MG DAILY
     Route: 048
  8. MELOXICAM [Concomitant]
     Indication: ARTHRITIS
     Route: 048
  9. TYLENOL [Concomitant]
     Indication: ARTHRITIS
     Dosage: NR PRN
     Route: 048

REACTIONS (7)
  - Cardiac flutter [Unknown]
  - Breast cancer stage II [Recovering/Resolving]
  - Atrial fibrillation [Unknown]
  - Myalgia [Unknown]
  - Arthralgia [Not Recovered/Not Resolved]
  - Drug dose omission [Unknown]
  - Intentional drug misuse [Unknown]
